FAERS Safety Report 6724374 (Version 5)
Quarter: 2015Q4

REPORT INFORMATION
  Report Type: Report from Study
  Country: DE (occurrence: DE)
  Receive Date: 20080812
  Receipt Date: 20151113
  Transmission Date: 20160305
  Serious: Yes (Death, Hospitalization, Congenital Anomaly, Other)
  Sender: FDA-Public Use
  Company Number: DE-BRISTOL-MYERS SQUIBB COMPANY-14290209

PATIENT
  Age: 0 Day
  Weight: 1.25 kg

DRUGS (6)
  1. EFAVIRENZ [Suspect]
     Active Substance: EFAVIRENZ
     Indication: PRODUCT USED FOR UNKNOWN INDICATION
     Dosage: 6000 MG, QD
     Route: 064
     Dates: start: 20050101, end: 20060925
  2. COMBIVIR [Concomitant]
     Active Substance: LAMIVUDINE\ZIDOVUDINE
     Indication: PRODUCT USED FOR UNKNOWN INDICATION
     Dosage: UNK
     Route: 064
     Dates: start: 20040428, end: 20070201
  3. COTRIMOXAZOLE [Concomitant]
     Active Substance: SULFAMETHOXAZOLE\TRIMETHOPRIM
     Indication: PRODUCT USED FOR UNKNOWN INDICATION
     Dosage: UNK
     Route: 064
     Dates: end: 20060925
  4. INVIRASE [Concomitant]
     Active Substance: SAQUINAVIR MESYLATE
     Indication: PRODUCT USED FOR UNKNOWN INDICATION
     Dosage: 1000 MG, QD
     Route: 064
     Dates: start: 20060925, end: 20070201
  5. NORVIR [Concomitant]
     Active Substance: RITONAVIR
     Indication: PRODUCT USED FOR UNKNOWN INDICATION
     Dosage: UNK
     Route: 064
     Dates: start: 20060925, end: 20070201
  6. VALCYTE [Concomitant]
     Active Substance: VALGANCICLOVIR HYDROCHLORIDE
     Indication: PRODUCT USED FOR UNKNOWN INDICATION
     Dosage: 900 MG, QD
     Route: 064
     Dates: start: 2004, end: 20060925

REACTIONS (13)
  - Congenital central nervous system anomaly [Fatal]
  - Anal stenosis [Fatal]
  - Congenital musculoskeletal anomaly [Unknown]
  - Dextrocardia [Unknown]
  - Single functional kidney [Fatal]
  - Bacterial sepsis [Fatal]
  - Congenital anomaly [Unknown]
  - Foetal exposure during pregnancy [Unknown]
  - Anal atresia [Fatal]
  - Systemic inflammatory response syndrome [Fatal]
  - Premature baby [Unknown]
  - Spine malformation [Fatal]
  - Congenital foot malformation [Unknown]

NARRATIVE: CASE EVENT DATE: 20070201
